FAERS Safety Report 11793005 (Version 1)
Quarter: 2015Q4

REPORT INFORMATION
  Report Type: Spontaneous
  Country: US (occurrence: None)
  Receive Date: 20151201
  Receipt Date: 20151201
  Transmission Date: 20160305
  Serious: No
  Sender: FDA-Public Use
  Company Number: None

PATIENT
  Sex: Female
  Weight: 83.01 kg

DRUGS (1)
  1. SULFOMETHAXOLE TMP DS TABLET (GENERIC FOR BACTRIM) AMNEAL [Suspect]
     Active Substance: SULFAMETHOXAZOLE\TRIMETHOPRIM
     Indication: CYSTITIS
     Dosage: BY MOUTH
     Dates: start: 20140812, end: 20150317

REACTIONS (2)
  - Erythema [None]
  - Nausea [None]
